FAERS Safety Report 18587931 (Version 1)
Quarter: 2020Q4

REPORT INFORMATION
  Report Type: Spontaneous
  Country: ES (occurrence: ES)
  Receive Date: 20201207
  Receipt Date: 20201207
  Transmission Date: 20210114
  Serious: Yes (Other)
  Sender: FDA-Public Use
  Company Number: NVSC2020ES318144

PATIENT
  Age: 62 Year
  Sex: Female

DRUGS (4)
  1. CAPTOPRIL STADA [Concomitant]
     Indication: PRODUCT USED FOR UNKNOWN INDICATION
     Dosage: 25 MG, QD ( 25 MG COMPRIMIDOS EFG, 60 COMPRIMIDOS)
     Route: 048
     Dates: start: 20150312
  2. TRANXILIUM [Concomitant]
     Active Substance: CLORAZEPATE DIPOTASSIUM
     Indication: PRODUCT USED FOR UNKNOWN INDICATION
     Dosage: 10 MG, Q8H ( 10 MG CAPSULAS DURAS, 30 CAPSULAS)
     Route: 048
     Dates: start: 20150311
  3. HIDROFEROL [Concomitant]
     Active Substance: CALCIFEDIOL
     Indication: PRODUCT USED FOR UNKNOWN INDICATION
     Dosage: 0.26 MG, QMO ( 0,266 MG SOLUCION ORAL, 10 AMPOLLAS BEBIBLES DE 1,5 ML)
     Route: 048
     Dates: start: 20190311
  4. FLUOXETINE [Suspect]
     Active Substance: FLUOXETINE HYDROCHLORIDE
     Indication: PRODUCT USED FOR UNKNOWN INDICATION
     Dosage: 20 MG, QD
     Route: 048
     Dates: start: 20201009, end: 20201015

REACTIONS (2)
  - Asthenia [Recovered/Resolved]
  - Bradycardia [Recovered/Resolved]

NARRATIVE: CASE EVENT DATE: 20201012
